FAERS Safety Report 9664106 (Version 1)
Quarter: 2013Q4

REPORT INFORMATION
  Report Type: Spontaneous
  Country: BR (occurrence: BR)
  Receive Date: 20131101
  Receipt Date: 20131101
  Transmission Date: 20140711
  Serious: Yes (Other)
  Sender: FDA-Public Use
  Company Number: BR-SA-2013SA109298

PATIENT
  Sex: Female

DRUGS (4)
  1. APIDRA [Suspect]
     Indication: PRODUCT USED FOR UNKNOWN INDICATION
     Route: 058
  2. LANTUS [Suspect]
     Indication: PRODUCT USED FOR UNKNOWN INDICATION
     Route: 058
  3. INSULIN PEN NOS [Suspect]
     Indication: DEVICE THERAPY
  4. INSULIN PEN NOS [Suspect]
     Indication: DEVICE THERAPY

REACTIONS (1)
  - Wrong drug administered [Unknown]
